FAERS Safety Report 7371906-9 (Version None)
Quarter: 2011Q1

REPORT INFORMATION
  Report Type: 
  Country: None (occurrence: None)
  Receive Date: 20110324
  Receipt Date: 20110318
  Transmission Date: 20110831
  Serious: Yes (Death, Other)
  Sender: FDA-Public Use
  Company Number: TR-GENZYME-THYM-1002362

PATIENT

DRUGS (4)
  1. THYMOGLOBULIN [Suspect]
     Indication: TRANSPLANT REJECTION
     Dosage: UNK
  2. METHYLPREDNISOLONE [Concomitant]
     Indication: PROPHYLAXIS AGAINST TRANSPLANT REJECTION
     Dosage: 1 G, UNK
  3. THYMOGLOBULIN [Suspect]
     Indication: PROPHYLAXIS AGAINST TRANSPLANT REJECTION
     Dosage: 3 MG/KG, UNK
  4. MYCOPHENOLATE MOFETIL [Concomitant]
     Indication: PROPHYLAXIS AGAINST TRANSPLANT REJECTION
     Dosage: UNK

REACTIONS (4)
  - TRANSPLANT REJECTION [None]
  - PERITONITIS BACTERIAL [None]
  - SEPTIC SHOCK [None]
  - LYMPHOPENIA [None]
